FAERS Safety Report 9688450 (Version 1)
Quarter: 2013Q4

REPORT INFORMATION
  Report Type: Spontaneous
  Country: GB (occurrence: GB)
  Receive Date: 20131114
  Receipt Date: 20131114
  Transmission Date: 20140711
  Serious: Yes (Other)
  Sender: FDA-Public Use
  Company Number: GB-ASTRAZENECA-2013SE81932

PATIENT
  Sex: Male

DRUGS (4)
  1. OMEPRAZOLE [Suspect]
     Indication: DIVERTICULITIS
     Route: 048
  2. OMEPRAZOLE [Suspect]
     Indication: DIVERTICULITIS
     Route: 048
  3. OMEPRAZOLE [Suspect]
     Indication: DIVERTICULITIS
     Dosage: DR. REDDY^S
     Route: 048
  4. OMEPRAZOLE [Suspect]
     Indication: DIVERTICULITIS
     Dosage: TEVA^S
     Route: 048

REACTIONS (1)
  - Diverticulitis [Unknown]
